FAERS Safety Report 4421696-4 (Version None)
Quarter: 2004Q3

REPORT INFORMATION
  Report Type: 
  Country: None (occurrence: None)
  Receive Date: 20040806
  Receipt Date: 20040723
  Transmission Date: 20050211
  Serious: Yes (Other)
  Sender: FDA-Public Use
  Company Number: USA040772457

PATIENT
  Age: 75 Year
  Sex: Male
  Weight: 84 kg

DRUGS (12)
  1. ALIMTA [Suspect]
     Indication: NON-SMALL CELL LUNG CANCER STAGE IV
     Dosage: 500 MG/M2
     Dates: start: 20040702
  2. GEMZAR [Suspect]
     Indication: NON-SMALL CELL LUNG CANCER STAGE IV
     Dates: start: 20031101, end: 20040201
  3. LOVASTATIN [Concomitant]
  4. ASPIRIN [Concomitant]
  5. ANAPROX [Concomitant]
  6. FOLIC ACID [Concomitant]
  7. VITAMIN B-12 [Concomitant]
  8. OMEPRAZOLE [Concomitant]
  9. IRON SUPPLEMENT [Concomitant]
  10. TAMSULOSIN [Concomitant]
  11. DECADRON [Concomitant]
  12. NAVELBINE [Concomitant]

REACTIONS (4)
  - GENERAL PHYSICAL HEALTH DETERIORATION [None]
  - MALIGNANT NEOPLASM PROGRESSION [None]
  - METASTASES TO CENTRAL NERVOUS SYSTEM [None]
  - NON-SMALL CELL LUNG CANCER STAGE IV [None]
